FAERS Safety Report 8521495-8 (Version None)
Quarter: 2012Q3

REPORT INFORMATION
  Report Type: 
  Country: None (occurrence: None)
  Receive Date: 20120719
  Receipt Date: 20120709
  Transmission Date: 20120928
  Serious: Yes (Other)
  Sender: FDA-Public Use
  Company Number: JP-VERTEX PHARMACEUTICALS INC.-AE-2012-006243

PATIENT
  Age: 71 Year
  Sex: Female

DRUGS (16)
  1. TELAVIC (TELAPREVIR) [Suspect]
     Indication: HEPATITIS C
     Route: 048
     Dates: start: 20120308, end: 20120516
  2. RIBAVIRIN [Concomitant]
     Route: 048
     Dates: start: 20120405, end: 20120411
  3. PEGINTERFERON ALFA-2B [Concomitant]
     Route: 058
     Dates: start: 20120322
  4. XYZAL [Concomitant]
     Route: 048
  5. AMLODIPINE [Concomitant]
     Route: 048
     Dates: end: 20120425
  6. TELAVIC (TELAPREVIR) [Suspect]
     Route: 048
     Dates: start: 20120517, end: 20120530
  7. PEGINTERFERON ALFA-2B [Concomitant]
     Route: 058
     Dates: start: 20120315, end: 20120321
  8. RIBAVIRIN [Concomitant]
     Indication: HEPATITIS C
     Route: 048
     Dates: start: 20120308, end: 20120404
  9. PROHEPARUM [Concomitant]
     Route: 048
     Dates: end: 20120405
  10. URSO 250 [Concomitant]
     Route: 048
     Dates: end: 20120405
  11. JANUVIA [Concomitant]
     Route: 048
  12. ALLOPURINOL [Concomitant]
     Route: 048
     Dates: start: 20120316
  13. RIBAVIRIN [Concomitant]
     Route: 048
     Dates: end: 20120502
  14. PEGINTERFERON ALFA-2B [Concomitant]
     Indication: HEPATITIS C
     Route: 058
     Dates: start: 20120308, end: 20120314
  15. RIBAVIRIN [Concomitant]
     Route: 048
     Dates: start: 20120412
  16. AMLODIPINE [Concomitant]
     Route: 048
     Dates: start: 20120426

REACTIONS (1)
  - DELIRIUM [None]
